FAERS Safety Report 8920059 (Version 1)
Quarter: 2012Q4

REPORT INFORMATION
  Report Type: 
  Country: US (occurrence: US)
  Receive Date: 20121121
  Receipt Date: 20121121
  Transmission Date: 20130627
  Serious: No
  Sender: FDA-Public Use
  Company Number: US-BRISTOL-MYERS SQUIBB COMPANY-16944720

PATIENT
  Sex: Female

DRUGS (2)
  1. AVALIDE TABS 150MG/12.5MG [Suspect]
     Indication: HYPERTENSION
     Dosage: started with 300mg/25mg years ago changed to a lower dose,half tab,full tab
  2. AMLODIPINE [Concomitant]
     Indication: HYPERTENSION
     Dosage: 1 df: half in the morning and at night

REACTIONS (2)
  - Labile blood pressure [Unknown]
  - Heart rate increased [Unknown]
